FAERS Safety Report 13943283 (Version 4)
Quarter: 2017Q4

REPORT INFORMATION
  Report Type: Spontaneous
  Country: CA (occurrence: CA)
  Receive Date: 20170907
  Receipt Date: 20171023
  Transmission Date: 20180320
  Serious: Yes (Other)
  Sender: FDA-Public Use
  Company Number: CA-CELLTRION HEALTHCARE JAPAN K.K.-2017CA011940

PATIENT

DRUGS (6)
  1. SERTRALINE [Concomitant]
     Active Substance: SERTRALINE HYDROCHLORIDE
     Dosage: 1 DF, DAILY
     Route: 065
  2. MAR ZOPICLONE [Concomitant]
     Dosage: 1-2 TABLET, DAILY
     Route: 065
  3. LENOLTECH NO 3 [Concomitant]
     Dosage: UNK
     Route: 065
  4. AMOXICILLIN. [Concomitant]
     Active Substance: AMOXICILLIN
     Dosage: 2 DF, DAILY
     Route: 065
  5. INFLECTRA [Suspect]
     Active Substance: INFLIXIMAB-DYYB
     Indication: CROHN^S DISEASE
     Dosage: 300 MG, CYCLIC,  Q 0,2,6 WEEKS, THEN EVERY 8 WEEKS
     Route: 042
     Dates: start: 20170829
  6. FLUCONAZOLE. [Concomitant]
     Active Substance: FLUCONAZOLE
     Dosage: 1 DF, UNK
     Route: 065

REACTIONS (5)
  - Off label use [Unknown]
  - Anal abscess [Unknown]
  - Abscess bacterial [Unknown]
  - Fistula discharge [Unknown]
  - Fistula [Unknown]
